FAERS Safety Report 9818000 (Version 1)
Quarter: 2013Q4

REPORT INFORMATION
  Report Type: Spontaneous
  Country: US (occurrence: None)
  Receive Date: 20131223
  Receipt Date: 20131223
  Transmission Date: 20140711
  Serious: No
  Sender: FDA-Public Use
  Company Number: 220233

PATIENT
  Age: 61 Year
  Sex: Male

DRUGS (2)
  1. PICATO [Suspect]
     Indication: ACTINIC KERATOSIS
     Dosage: (DILY), DERMAL
     Dates: start: 20130104, end: 20130106
  2. LISINOPRIL (LISINOPRIL) [Concomitant]

REACTIONS (5)
  - Skin exfoliation [None]
  - Drug ineffective [None]
  - Off label use [None]
  - Drug administration error [None]
  - Accidental exposure to product [None]
